FAERS Safety Report 17212661 (Version 2)
Quarter: 2020Q1

REPORT INFORMATION
  Report Type: Spontaneous
  Country: US (occurrence: US)
  Receive Date: 20191230
  Receipt Date: 20200114
  Transmission Date: 20200409
  Serious: Yes (Other)
  Sender: FDA-Public Use
  Company Number: US-ELI_LILLY_AND_COMPANY-US201912008766

PATIENT
  Age: 81 Year
  Sex: Female

DRUGS (5)
  1. HUMALOG [Suspect]
     Active Substance: INSULIN LISPRO
     Dosage: UNK UNK, 40 TO 50 UNITS ON SLIDING SCALE  VIA PUMP
     Route: 050
  2. HUMALOG [Suspect]
     Active Substance: INSULIN LISPRO
     Dosage: UNK UNK, 40 TO 50 UNITS ON SLIDING SCALE  VIA PUMP
     Route: 050
  3. HUMALOG [Suspect]
     Active Substance: INSULIN LISPRO
     Dosage: UNK UNK, 40 TO 50 UNITS ON SLIDING SCALE  VIA PUMP
     Route: 050
  4. HUMALOG [Suspect]
     Active Substance: INSULIN LISPRO
     Indication: DIABETES MELLITUS
     Dosage: UNK UNK, 40 TO 50 UNITS ON SLIDING SCALE
     Route: 065
     Dates: start: 1980
  5. HUMALOG [Suspect]
     Active Substance: INSULIN LISPRO
     Dosage: UNK UNK, 40 TO 50 UNITS ON SLIDING SCALE  VIA PUMP
     Route: 050

REACTIONS (3)
  - Blood glucose increased [Unknown]
  - Product storage error [Unknown]
  - Dementia [Not Recovered/Not Resolved]
